FAERS Safety Report 15462312 (Version 28)
Quarter: 2025Q3

REPORT INFORMATION
  Report Type: Spontaneous
  Country: CA (occurrence: CA)
  Receive Date: 20181004
  Receipt Date: 20250811
  Transmission Date: 20251021
  Serious: Yes (Death, Life-Threatening, Hospitalization, Disabling, Other)
  Sender: ALEXION PHARMACEUTICALS
  Company Number: 2017SE55839

PATIENT
  Age: 44 Year
  Sex: Female
  Weight: 63 kg

DRUGS (261)
  1. ESOMEPRAZOLE MAGNESIUM [Suspect]
     Active Substance: ESOMEPRAZOLE MAGNESIUM
     Indication: Product used for unknown indication
  2. ESOMEPRAZOLE MAGNESIUM [Suspect]
     Active Substance: ESOMEPRAZOLE MAGNESIUM
     Indication: Rheumatoid arthritis
     Route: 065
  3. ESOMEPRAZOLE MAGNESIUM [Suspect]
     Active Substance: ESOMEPRAZOLE MAGNESIUM
     Indication: Rheumatoid arthritis
  4. VIMOVO [Suspect]
     Active Substance: ESOMEPRAZOLE MAGNESIUM\NAPROXEN
     Indication: Product used for unknown indication
  5. VIMOVO [Suspect]
     Active Substance: ESOMEPRAZOLE MAGNESIUM\NAPROXEN
  6. VITAMIN D3 [Suspect]
     Active Substance: CHOLECALCIFEROL
     Indication: Product used for unknown indication
     Route: 065
  7. ORENCIA [Concomitant]
     Active Substance: ABATACEPT
     Indication: Product used for unknown indication
     Dosage: 125 MG, QD
  8. ORENCIA [Concomitant]
     Active Substance: ABATACEPT
     Indication: Rheumatoid arthritis
     Dosage: 125 MILLIGRAM, QD
  9. ORENCIA [Concomitant]
     Active Substance: ABATACEPT
     Dosage: 125 MILLIGRAM, QD
  10. ORENCIA [Concomitant]
     Active Substance: ABATACEPT
     Dosage: 125 MILLIGRAM, QD
  11. ORENCIA [Concomitant]
     Active Substance: ABATACEPT
     Dosage: 125 MILLIGRAM, QD
  12. SALAZOPYRINE [Suspect]
     Active Substance: SULFASALAZINE
     Dosage: 1 GRAM, QD
  13. SALAZOPYRINE [Suspect]
     Active Substance: SULFASALAZINE
  14. PHENYLEPHRINE HYDROCHLORIDE [Suspect]
     Active Substance: PHENYLEPHRINE HYDROCHLORIDE
     Indication: Product used for unknown indication
  15. PHENYLEPHRINE HYDROCHLORIDE [Suspect]
     Active Substance: PHENYLEPHRINE HYDROCHLORIDE
  16. PHENYLEPHRINE HYDROCHLORIDE [Suspect]
     Active Substance: PHENYLEPHRINE HYDROCHLORIDE
  17. NAPROXEN [Suspect]
     Active Substance: NAPROXEN
     Dosage: 1000 MG, QD
     Route: 065
  18. NAPROXEN [Suspect]
     Active Substance: NAPROXEN
     Route: 065
  19. NAPROXEN [Suspect]
     Active Substance: NAPROXEN
     Dosage: 1000 MG, QD
     Route: 065
  20. NAPROXEN [Suspect]
     Active Substance: NAPROXEN
     Dosage: 1000 MG, QD
     Route: 065
  21. NAPROXEN [Suspect]
     Active Substance: NAPROXEN
     Dosage: 1000 MG, QD
     Route: 065
  22. NAPROXEN [Suspect]
     Active Substance: NAPROXEN
     Dosage: 1000 MG, QD
     Route: 065
  23. NAPROXEN [Suspect]
     Active Substance: NAPROXEN
     Dosage: 500 MG, QD
     Route: 065
  24. NAPROXEN [Suspect]
     Active Substance: NAPROXEN
     Dosage: 500 MG, QD
     Route: 065
  25. NAPROXEN [Suspect]
     Active Substance: NAPROXEN
     Dosage: 1000 MG, QD
     Route: 065
  26. NAPROXEN [Suspect]
     Active Substance: NAPROXEN
     Dosage: 1000 MG, QD
     Route: 065
  27. NAPROXEN [Suspect]
     Active Substance: NAPROXEN
     Dosage: 500 MG, QD
     Route: 065
  28. NAPROXEN [Suspect]
     Active Substance: NAPROXEN
     Dosage: 1000 MG, QD
     Route: 065
  29. NAPROXEN [Suspect]
     Active Substance: NAPROXEN
     Dosage: 500 MG, QD
     Route: 065
  30. NAPROXEN [Suspect]
     Active Substance: NAPROXEN
     Route: 065
  31. NAPROXEN [Suspect]
     Active Substance: NAPROXEN
  32. ACETAMINOPHEN [Suspect]
     Active Substance: ACETAMINOPHEN
     Indication: Product used for unknown indication
     Route: 065
  33. ACETAMINOPHEN\OXYCODONE HYDROCHLORIDE [Suspect]
     Active Substance: ACETAMINOPHEN\OXYCODONE HYDROCHLORIDE
     Indication: Product used for unknown indication
     Route: 065
  34. ACETAMINOPHEN\OXYCODONE HYDROCHLORIDE [Suspect]
     Active Substance: ACETAMINOPHEN\OXYCODONE HYDROCHLORIDE
     Route: 065
  35. ACETAMINOPHEN\OXYCODONE HYDROCHLORIDE [Suspect]
     Active Substance: ACETAMINOPHEN\OXYCODONE HYDROCHLORIDE
     Route: 065
  36. ACETAMINOPHEN\OXYCODONE HYDROCHLORIDE [Suspect]
     Active Substance: ACETAMINOPHEN\OXYCODONE HYDROCHLORIDE
     Route: 065
  37. ACETAMINOPHEN\OXYCODONE HYDROCHLORIDE [Suspect]
     Active Substance: ACETAMINOPHEN\OXYCODONE HYDROCHLORIDE
     Route: 065
  38. ACETAMINOPHEN\OXYCODONE HYDROCHLORIDE [Suspect]
     Active Substance: ACETAMINOPHEN\OXYCODONE HYDROCHLORIDE
     Route: 065
  39. ACETAMINOPHEN\OXYCODONE HYDROCHLORIDE [Suspect]
     Active Substance: ACETAMINOPHEN\OXYCODONE HYDROCHLORIDE
     Route: 065
  40. ACETAMINOPHEN\OXYCODONE HYDROCHLORIDE [Suspect]
     Active Substance: ACETAMINOPHEN\OXYCODONE HYDROCHLORIDE
     Route: 065
  41. CIMZIA [Suspect]
     Active Substance: CERTOLIZUMAB PEGOL
     Indication: Product used for unknown indication
     Route: 065
  42. REMICADE [Suspect]
     Active Substance: INFLIXIMAB
     Indication: Product used for unknown indication
  43. REMICADE [Suspect]
     Active Substance: INFLIXIMAB
  44. REMICADE [Suspect]
     Active Substance: INFLIXIMAB
  45. PLAQUENIL [Concomitant]
     Active Substance: HYDROXYCHLOROQUINE SULFATE
     Indication: Product used for unknown indication
     Route: 065
  46. PLAQUENIL [Concomitant]
     Active Substance: HYDROXYCHLOROQUINE SULFATE
     Route: 065
  47. ESOMEPRAZOLE MAGNESIUM [Suspect]
     Active Substance: ESOMEPRAZOLE MAGNESIUM
     Indication: Product used for unknown indication
  48. CODEINE [Concomitant]
     Active Substance: CODEINE
     Indication: Product used for unknown indication
     Route: 065
  49. PANTOPRAZOLE SODIUM [Suspect]
     Active Substance: PANTOPRAZOLE SODIUM
     Indication: Product used for unknown indication
  50. PANTOPRAZOLE SODIUM [Suspect]
     Active Substance: PANTOPRAZOLE SODIUM
     Route: 065
  51. PANTOPRAZOLE SODIUM [Suspect]
     Active Substance: PANTOPRAZOLE SODIUM
  52. PANTOPRAZOLE SODIUM [Suspect]
     Active Substance: PANTOPRAZOLE SODIUM
     Route: 065
  53. PANTOPRAZOLE SODIUM [Suspect]
     Active Substance: PANTOPRAZOLE SODIUM
  54. PANTOPRAZOLE SODIUM [Suspect]
     Active Substance: PANTOPRAZOLE SODIUM
  55. PANTOPRAZOLE SODIUM [Suspect]
     Active Substance: PANTOPRAZOLE SODIUM
  56. PANTOPRAZOLE SODIUM [Suspect]
     Active Substance: PANTOPRAZOLE SODIUM
     Route: 065
  57. PANTOPRAZOLE SODIUM [Suspect]
     Active Substance: PANTOPRAZOLE SODIUM
     Route: 065
  58. PANTOPRAZOLE SODIUM [Suspect]
     Active Substance: PANTOPRAZOLE SODIUM
     Route: 065
  59. GOLD SODIUM THIOMALATE [Suspect]
     Active Substance: GOLD SODIUM THIOMALATE
     Indication: Product used for unknown indication
     Route: 065
  60. GINKGO [Concomitant]
     Active Substance: GINKGO
     Indication: Product used for unknown indication
  61. BENZALKONIUM CHLORIDE [Suspect]
     Active Substance: BENZALKONIUM CHLORIDE
     Indication: Product used for unknown indication
     Route: 065
  62. FOLIC ACID [Concomitant]
     Active Substance: FOLIC ACID
     Indication: Product used for unknown indication
     Route: 065
  63. RANITIDINE [Suspect]
     Active Substance: RANITIDINE
     Indication: Product used for unknown indication
  64. RANITIDINE [Suspect]
     Active Substance: RANITIDINE
  65. RANITIDINE [Suspect]
     Active Substance: RANITIDINE
  66. RANITIDINE [Suspect]
     Active Substance: RANITIDINE
  67. RANITIDINE [Suspect]
     Active Substance: RANITIDINE
  68. RANITIDINE [Suspect]
     Active Substance: RANITIDINE
     Dosage: 300 MG, QD (1 PER WEEK)
  69. RANITIDINE [Suspect]
     Active Substance: RANITIDINE
  70. RANITIDINE [Suspect]
     Active Substance: RANITIDINE
  71. RANITIDINE [Suspect]
     Active Substance: RANITIDINE
  72. RANITIDINE [Suspect]
     Active Substance: RANITIDINE
  73. RANITIDINE [Suspect]
     Active Substance: RANITIDINE
  74. RANITIDINE [Suspect]
     Active Substance: RANITIDINE
     Dosage: 150 MILLIGRAM, QD
  75. RANITIDINE [Suspect]
     Active Substance: RANITIDINE
  76. RANITIDINE [Suspect]
     Active Substance: RANITIDINE
     Dosage: 300 MILLIGRAM, QW
  77. RANITIDINE [Suspect]
     Active Substance: RANITIDINE
  78. AZATHIOPRINE SODIUM [Suspect]
     Active Substance: AZATHIOPRINE SODIUM
     Indication: Rheumatoid arthritis
     Route: 065
  79. AZATHIOPRINE SODIUM [Suspect]
     Active Substance: AZATHIOPRINE SODIUM
     Indication: Product used for unknown indication
  80. AZATHIOPRINE SODIUM [Suspect]
     Active Substance: AZATHIOPRINE SODIUM
  81. AZATHIOPRINE SODIUM [Suspect]
     Active Substance: AZATHIOPRINE SODIUM
  82. AZATHIOPRINE SODIUM [Suspect]
     Active Substance: AZATHIOPRINE SODIUM
     Route: 065
  83. AZATHIOPRINE SODIUM [Suspect]
     Active Substance: AZATHIOPRINE SODIUM
  84. AZATHIOPRINE SODIUM [Suspect]
     Active Substance: AZATHIOPRINE SODIUM
     Route: 065
  85. AZATHIOPRINE SODIUM [Suspect]
     Active Substance: AZATHIOPRINE SODIUM
     Route: 065
  86. CANNABIS SATIVA FLOWERING TOP [Concomitant]
     Active Substance: CANNABIS SATIVA FLOWERING TOP
     Indication: Product used for unknown indication
  87. PANTOPRAZOLE SODIUM [Suspect]
     Active Substance: PANTOPRAZOLE SODIUM
     Indication: Product used for unknown indication
  88. RANITIDINE [Suspect]
     Active Substance: RANITIDINE
     Indication: Product used for unknown indication
  89. SEPTRA [Suspect]
     Active Substance: SULFAMETHOXAZOLE\TRIMETHOPRIM
     Indication: Product used for unknown indication
     Route: 065
     Dates: start: 20071221, end: 20180211
  90. SEPTRA [Suspect]
     Active Substance: SULFAMETHOXAZOLE\TRIMETHOPRIM
     Route: 065
  91. ADALIMUMAB [Suspect]
     Active Substance: ADALIMUMAB
     Indication: Product used for unknown indication
     Route: 065
  92. PHENYLEPHRINE [Suspect]
     Active Substance: PHENYLEPHRINE
     Indication: Product used for unknown indication
     Route: 065
  93. AMITRIPTYLINE [Suspect]
     Active Substance: AMITRIPTYLINE
     Indication: Product used for unknown indication
     Dosage: 75 MG, QD
  94. AMITRIPTYLINE [Suspect]
     Active Substance: AMITRIPTYLINE
     Dosage: 75 MG, QD
  95. OXYCODONE HYDROCHLORIDE [Suspect]
     Active Substance: OXYCODONE HYDROCHLORIDE
     Indication: Product used for unknown indication
     Route: 065
  96. OXYCODONE HYDROCHLORIDE [Suspect]
     Active Substance: OXYCODONE HYDROCHLORIDE
     Route: 065
  97. OXYCODONE HYDROCHLORIDE [Suspect]
     Active Substance: OXYCODONE HYDROCHLORIDE
     Route: 065
  98. OXYCODONE HYDROCHLORIDE [Suspect]
     Active Substance: OXYCODONE HYDROCHLORIDE
     Route: 065
  99. METHYLPREDNISOLONE ACETATE [Suspect]
     Active Substance: METHYLPREDNISOLONE ACETATE
     Indication: Rheumatoid arthritis
     Dosage: 180 MG, QD (DAILY)
  100. METHYLPREDNISOLONE ACETATE [Suspect]
     Active Substance: METHYLPREDNISOLONE ACETATE
     Dosage: 180 MG, QD (DAILY)
  101. METHYLPREDNISOLONE ACETATE [Suspect]
     Active Substance: METHYLPREDNISOLONE ACETATE
  102. METHYLPREDNISOLONE ACETATE [Suspect]
     Active Substance: METHYLPREDNISOLONE ACETATE
     Dosage: 180 MG, QD (DAILY)
  103. METHYLPREDNISOLONE ACETATE [Suspect]
     Active Substance: METHYLPREDNISOLONE ACETATE
  104. METHYLPREDNISOLONE ACETATE [Suspect]
     Active Substance: METHYLPREDNISOLONE ACETATE
  105. METHYLPREDNISOLONE ACETATE [Suspect]
     Active Substance: METHYLPREDNISOLONE ACETATE
  106. METHYLPREDNISOLONE ACETATE [Suspect]
     Active Substance: METHYLPREDNISOLONE ACETATE
  107. METHYLPREDNISOLONE ACETATE [Suspect]
     Active Substance: METHYLPREDNISOLONE ACETATE
  108. METHYLPREDNISOLONE ACETATE [Suspect]
     Active Substance: METHYLPREDNISOLONE ACETATE
  109. METHYLPREDNISOLONE ACETATE [Suspect]
     Active Substance: METHYLPREDNISOLONE ACETATE
  110. METHYLPREDNISOLONE ACETATE [Suspect]
     Active Substance: METHYLPREDNISOLONE ACETATE
  111. METHYLPREDNISOLONE ACETATE [Suspect]
     Active Substance: METHYLPREDNISOLONE ACETATE
  112. METHYLPREDNISOLONE ACETATE [Suspect]
     Active Substance: METHYLPREDNISOLONE ACETATE
     Route: 065
  113. METHYLPREDNISOLONE ACETATE [Suspect]
     Active Substance: METHYLPREDNISOLONE ACETATE
  114. METHYLPREDNISOLONE ACETATE [Suspect]
     Active Substance: METHYLPREDNISOLONE ACETATE
  115. METHYLPREDNISOLONE ACETATE [Suspect]
     Active Substance: METHYLPREDNISOLONE ACETATE
  116. METHYLPREDNISOLONE ACETATE [Suspect]
     Active Substance: METHYLPREDNISOLONE ACETATE
  117. METHYLPREDNISOLONE ACETATE [Suspect]
     Active Substance: METHYLPREDNISOLONE ACETATE
  118. METHYLPREDNISOLONE ACETATE [Suspect]
     Active Substance: METHYLPREDNISOLONE ACETATE
     Route: 065
  119. METHYLPREDNISOLONE ACETATE [Suspect]
     Active Substance: METHYLPREDNISOLONE ACETATE
  120. METHYLPREDNISOLONE ACETATE [Suspect]
     Active Substance: METHYLPREDNISOLONE ACETATE
  121. PREDNISONE [Suspect]
     Active Substance: PREDNISONE
     Indication: Product used for unknown indication
  122. PREDNISONE [Suspect]
     Active Substance: PREDNISONE
     Indication: Rheumatoid arthritis
  123. PREDNISONE [Suspect]
     Active Substance: PREDNISONE
     Dosage: 150 MG, QD
  124. PREDNISONE [Suspect]
     Active Substance: PREDNISONE
     Dosage: 15 MG, QD
  125. PREDNISONE [Suspect]
     Active Substance: PREDNISONE
  126. PREDNISONE [Suspect]
     Active Substance: PREDNISONE
     Dosage: 150 MG, QD
  127. PREDNISONE [Suspect]
     Active Substance: PREDNISONE
  128. PREDNISONE [Suspect]
     Active Substance: PREDNISONE
     Dosage: 150 MG, QD
  129. PREDNISONE [Suspect]
     Active Substance: PREDNISONE
  130. PREDNISONE [Suspect]
     Active Substance: PREDNISONE
     Dosage: 150 MG, QD
  131. PREDNISONE [Suspect]
     Active Substance: PREDNISONE
     Dosage: 15 MG, QD
  132. PREDNISONE [Suspect]
     Active Substance: PREDNISONE
     Dosage: 15 MG, QD
  133. PREDNISONE [Suspect]
     Active Substance: PREDNISONE
  134. PREDNISONE [Suspect]
     Active Substance: PREDNISONE
     Dosage: 15 MG, QD
  135. PREGABALIN [Suspect]
     Active Substance: PREGABALIN
     Indication: Fibromyalgia
     Dosage: 300 MG, QD
  136. PREGABALIN [Suspect]
     Active Substance: PREGABALIN
     Indication: Rheumatoid arthritis
     Dosage: 150 MG, QD
  137. PREGABALIN [Suspect]
     Active Substance: PREGABALIN
     Dosage: 150 MG, QD
  138. PREGABALIN [Suspect]
     Active Substance: PREGABALIN
     Dosage: 150 MG, QD
  139. PREGABALIN [Suspect]
     Active Substance: PREGABALIN
     Dosage: 300 MG, QD
  140. PREGABALIN [Suspect]
     Active Substance: PREGABALIN
     Dosage: 150 MG, QD
  141. PREGABALIN [Suspect]
     Active Substance: PREGABALIN
     Dosage: 150 MG, QD
  142. PREGABALIN [Suspect]
     Active Substance: PREGABALIN
     Dosage: 150 MG, QD
  143. CELEBREX [Concomitant]
     Active Substance: CELECOXIB
     Indication: Product used for unknown indication
     Route: 065
  144. CELEBREX [Concomitant]
     Active Substance: CELECOXIB
     Route: 065
  145. CELEBREX [Concomitant]
     Active Substance: CELECOXIB
     Route: 065
  146. HUMAN RHO(D) IMMUNE GLOBULIN [Suspect]
     Active Substance: HUMAN RHO(D) IMMUNE GLOBULIN
     Indication: Product used for unknown indication
     Route: 065
  147. LYRICA [Suspect]
     Active Substance: PREGABALIN
     Indication: Rheumatoid arthritis
  148. LYRICA [Suspect]
     Active Substance: PREGABALIN
     Dosage: 300 MILLIGRAM, QD
  149. LYRICA [Suspect]
     Active Substance: PREGABALIN
  150. LYRICA [Suspect]
     Active Substance: PREGABALIN
  151. LYRICA [Suspect]
     Active Substance: PREGABALIN
     Dosage: 300 MG, QD
  152. SULFAMETHOXAZOLE [Suspect]
     Active Substance: SULFAMETHOXAZOLE
     Indication: Product used for unknown indication
     Route: 065
  153. SULFAMETHOXAZOLE [Suspect]
     Active Substance: SULFAMETHOXAZOLE
     Route: 065
  154. ORENCIA [Suspect]
     Active Substance: ABATACEPT
     Indication: Rheumatoid arthritis
     Dosage: 125 MG, QD
  155. ORENCIA [Suspect]
     Active Substance: ABATACEPT
     Indication: Product used for unknown indication
     Dosage: 125 MG, QD
  156. ORENCIA [Suspect]
     Active Substance: ABATACEPT
     Dosage: 125 MG, QD
  157. ORENCIA [Suspect]
     Active Substance: ABATACEPT
     Dosage: 125 MG, QD
  158. ORENCIA [Suspect]
     Active Substance: ABATACEPT
     Dosage: 125 MG, QD
  159. HYDROXYCHLOROQUINE [Suspect]
     Active Substance: HYDROXYCHLOROQUINE
     Indication: Product used for unknown indication
     Route: 065
  160. HYDROXYCHLOROQUINE [Suspect]
     Active Substance: HYDROXYCHLOROQUINE
     Route: 065
  161. HYDROXYCHLOROQUINE [Suspect]
     Active Substance: HYDROXYCHLOROQUINE
     Route: 065
  162. ALENDRONIC ACID [Suspect]
     Active Substance: ALENDRONIC ACID
     Indication: Product used for unknown indication
  163. ALENDRONIC ACID [Suspect]
     Active Substance: ALENDRONIC ACID
  164. SULFASALAZINE [Suspect]
     Active Substance: SULFASALAZINE
     Indication: Rheumatoid arthritis
     Dosage: 1 G, QD
  165. SULFASALAZINE [Suspect]
     Active Substance: SULFASALAZINE
     Dosage: 1 G, QD
     Dates: start: 20071221, end: 20080211
  166. SULFASALAZINE [Suspect]
     Active Substance: SULFASALAZINE
     Dosage: 1000 MG, WE
  167. ALENDRONATE SODIUM [Suspect]
     Active Substance: ALENDRONATE SODIUM
     Indication: Product used for unknown indication
     Route: 065
  168. ALENDRONATE SODIUM [Suspect]
     Active Substance: ALENDRONATE SODIUM
     Route: 065
  169. ALENDRONATE SODIUM [Suspect]
     Active Substance: ALENDRONATE SODIUM
     Route: 065
  170. ALENDRONATE SODIUM [Suspect]
     Active Substance: ALENDRONATE SODIUM
     Route: 065
  171. LIPITOR [Concomitant]
     Active Substance: ATORVASTATIN CALCIUM
     Indication: Product used for unknown indication
  172. MELOXICAM [Suspect]
     Active Substance: MELOXICAM
     Indication: Product used for unknown indication
     Route: 065
  173. GOLD [Suspect]
     Active Substance: GOLD
     Indication: Product used for unknown indication
     Route: 065
  174. AZATHIOPRINE [Suspect]
     Active Substance: AZATHIOPRINE
     Indication: Product used for unknown indication
  175. AZATHIOPRINE [Suspect]
     Active Substance: AZATHIOPRINE
     Indication: Rheumatoid arthritis
     Route: 065
  176. AZATHIOPRINE [Suspect]
     Active Substance: AZATHIOPRINE
     Route: 065
  177. AZATHIOPRINE [Suspect]
     Active Substance: AZATHIOPRINE
  178. AZATHIOPRINE [Suspect]
     Active Substance: AZATHIOPRINE
     Route: 065
  179. AZATHIOPRINE [Suspect]
     Active Substance: AZATHIOPRINE
     Route: 065
  180. AZATHIOPRINE [Suspect]
     Active Substance: AZATHIOPRINE
     Route: 065
  181. AZATHIOPRINE [Suspect]
     Active Substance: AZATHIOPRINE
     Route: 065
  182. AZATHIOPRINE [Suspect]
     Active Substance: AZATHIOPRINE
  183. AZATHIOPRINE [Suspect]
     Active Substance: AZATHIOPRINE
     Route: 065
  184. AZATHIOPRINE [Suspect]
     Active Substance: AZATHIOPRINE
  185. AZATHIOPRINE [Suspect]
     Active Substance: AZATHIOPRINE
     Route: 065
  186. SIMPONI [Suspect]
     Active Substance: GOLIMUMAB
     Indication: Product used for unknown indication
  187. SIMPONI [Suspect]
     Active Substance: GOLIMUMAB
  188. LEFLUNOMIDE [Suspect]
     Active Substance: LEFLUNOMIDE
     Indication: Product used for unknown indication
     Route: 065
  189. LEFLUNOMIDE [Suspect]
     Active Substance: LEFLUNOMIDE
     Route: 065
  190. TRIMETHOPRIM [Suspect]
     Active Substance: TRIMETHOPRIM
     Indication: Product used for unknown indication
  191. TRIMETHOPRIM [Suspect]
     Active Substance: TRIMETHOPRIM
     Route: 065
  192. TRIMETHOPRIM [Suspect]
     Active Substance: TRIMETHOPRIM
     Route: 065
  193. FOSAMAX [Suspect]
     Active Substance: ALENDRONATE SODIUM
     Indication: Product used for unknown indication
  194. FOSAMAX [Suspect]
     Active Substance: ALENDRONATE SODIUM
     Route: 065
  195. DEXILANT [Concomitant]
     Active Substance: DEXLANSOPRAZOLE
     Indication: Product used for unknown indication
     Dosage: 60 MG, QD
     Route: 065
  196. BACTRIM [Suspect]
     Active Substance: SULFAMETHOXAZOLE\TRIMETHOPRIM
     Indication: Product used for unknown indication
     Route: 065
  197. RANITIDINE HYDROCHLORIDE [Suspect]
     Active Substance: RANITIDINE HYDROCHLORIDE
     Indication: Product used for unknown indication
  198. RANITIDINE HYDROCHLORIDE [Suspect]
     Active Substance: RANITIDINE HYDROCHLORIDE
     Dosage: 300 MG, QD
  199. RANITIDINE HYDROCHLORIDE [Suspect]
     Active Substance: RANITIDINE HYDROCHLORIDE
     Dosage: 300 MG, WE
  200. RANITIDINE HYDROCHLORIDE [Suspect]
     Active Substance: RANITIDINE HYDROCHLORIDE
  201. RANITIDINE HYDROCHLORIDE [Suspect]
     Active Substance: RANITIDINE HYDROCHLORIDE
     Dosage: 300 MG, QD
  202. ARAVA [Suspect]
     Active Substance: LEFLUNOMIDE
     Indication: Product used for unknown indication
  203. ARAVA [Suspect]
     Active Substance: LEFLUNOMIDE
     Route: 065
  204. ARAVA [Suspect]
     Active Substance: LEFLUNOMIDE
     Route: 065
  205. XELJANZ [Suspect]
     Active Substance: TOFACITINIB CITRATE
     Indication: Rheumatoid arthritis
     Dosage: 10 MG, QD
     Dates: start: 20140927
  206. XELJANZ [Suspect]
     Active Substance: TOFACITINIB CITRATE
  207. XELJANZ [Suspect]
     Active Substance: TOFACITINIB CITRATE
  208. XELJANZ [Suspect]
     Active Substance: TOFACITINIB CITRATE
  209. XELJANZ [Suspect]
     Active Substance: TOFACITINIB CITRATE
  210. XELJANZ [Suspect]
     Active Substance: TOFACITINIB CITRATE
  211. XELJANZ [Suspect]
     Active Substance: TOFACITINIB CITRATE
  212. XELJANZ [Suspect]
     Active Substance: TOFACITINIB CITRATE
  213. XELJANZ [Suspect]
     Active Substance: TOFACITINIB CITRATE
  214. XELJANZ [Suspect]
     Active Substance: TOFACITINIB CITRATE
  215. XELJANZ [Suspect]
     Active Substance: TOFACITINIB CITRATE
     Dosage: 2 MG, QD
  216. XELJANZ [Suspect]
     Active Substance: TOFACITINIB CITRATE
  217. XELJANZ [Suspect]
     Active Substance: TOFACITINIB CITRATE
  218. XELJANZ [Suspect]
     Active Substance: TOFACITINIB CITRATE
  219. XELJANZ [Suspect]
     Active Substance: TOFACITINIB CITRATE
     Dosage: 2 MG, QD
  220. XELJANZ [Suspect]
     Active Substance: TOFACITINIB CITRATE
  221. XELJANZ [Suspect]
     Active Substance: TOFACITINIB CITRATE
  222. XELJANZ [Suspect]
     Active Substance: TOFACITINIB CITRATE
     Dosage: 2 DF, QD
  223. XELJANZ [Suspect]
     Active Substance: TOFACITINIB CITRATE
     Dosage: 2 DF, QD
  224. AMITRIPTYLINE HYDROCHLORIDE [Suspect]
     Active Substance: AMITRIPTYLINE HYDROCHLORIDE
     Indication: Product used for unknown indication
     Dosage: 75 MG, QD
  225. METHOTREXATE [Suspect]
     Active Substance: METHOTREXATE
     Indication: Rheumatoid arthritis
  226. METHOTREXATE [Suspect]
     Active Substance: METHOTREXATE
     Dosage: 20 MG, WE
  227. METHOTREXATE [Suspect]
     Active Substance: METHOTREXATE
     Dosage: 20 MG, WE
  228. METHOTREXATE [Suspect]
     Active Substance: METHOTREXATE
  229. METHOTREXATE [Suspect]
     Active Substance: METHOTREXATE
     Dosage: 20 MG, WE
  230. METHOTREXATE [Suspect]
     Active Substance: METHOTREXATE
     Dosage: 20 MG, WE
  231. SODIUM BORATE [Suspect]
     Active Substance: SODIUM BORATE
     Indication: Product used for unknown indication
     Route: 065
  232. HUMIRA [Suspect]
     Active Substance: ADALIMUMAB
     Indication: Rheumatoid arthritis
  233. HUMIRA [Suspect]
     Active Substance: ADALIMUMAB
     Indication: Drug therapy
     Route: 065
  234. HUMIRA [Suspect]
     Active Substance: ADALIMUMAB
  235. HUMIRA [Suspect]
     Active Substance: ADALIMUMAB
     Route: 065
  236. LEVOTHYROXINE [Concomitant]
     Active Substance: LEVOTHYROXINE
     Indication: Product used for unknown indication
     Dosage: 175 ?G, QD
     Route: 065
  237. ACTEMRA [Suspect]
     Active Substance: TOCILIZUMAB
     Indication: Rheumatoid arthritis
     Dosage: 160 MG, WE
  238. ACTEMRA [Suspect]
     Active Substance: TOCILIZUMAB
     Dosage: 160 MG, WE
  239. METHYLPREDNISOLONE SODIUM SUCCINATE [Suspect]
     Active Substance: METHYLPREDNISOLONE SODIUM SUCCINATE
     Indication: Product used for unknown indication
  240. EDETATE DISODIUM [Suspect]
     Active Substance: EDETATE DISODIUM
     Indication: Product used for unknown indication
     Route: 065
  241. DIPHENHYDRAMINE HYDROCHLORIDE [Suspect]
     Active Substance: DIPHENHYDRAMINE HYDROCHLORIDE
     Indication: Product used for unknown indication
     Route: 065
  242. MELOXICAM [Suspect]
     Active Substance: MELOXICAM
     Indication: Product used for unknown indication
     Dosage: 150 MG, QD
     Route: 065
  243. MELOXICAM [Suspect]
     Active Substance: MELOXICAM
     Route: 065
  244. MELOXICAM [Suspect]
     Active Substance: MELOXICAM
     Route: 065
  245. MELOXICAM [Suspect]
     Active Substance: MELOXICAM
     Route: 065
  246. MELOXICAM [Suspect]
     Active Substance: MELOXICAM
     Dosage: 150 MG, QD
     Route: 065
  247. ALLOPURINOL [Suspect]
     Active Substance: ALLOPURINOL
     Indication: Product used for unknown indication
  248. AMOXICILLIN [Suspect]
     Active Substance: AMOXICILLIN
     Indication: Product used for unknown indication
     Route: 065
  249. SODIUM PERBORATE [Suspect]
     Active Substance: SODIUM PERBORATE
     Indication: Product used for unknown indication
     Route: 065
  250. ETHYLENEDIAMINE [Suspect]
     Active Substance: ETHYLENEDIAMINE
     Indication: Product used for unknown indication
     Route: 065
  251. ADALIMUMAB [Suspect]
     Active Substance: ADALIMUMAB
     Indication: Product used for unknown indication
  252. ADALIMUMAB [Suspect]
     Active Substance: ADALIMUMAB
  253. BORIC ACID [Suspect]
     Active Substance: BORIC ACID
     Indication: Product used for unknown indication
     Route: 065
  254. ENBREL [Suspect]
     Active Substance: ETANERCEPT
     Indication: Rheumatoid arthritis
     Dosage: 50 MG, WE
  255. ENBREL [Suspect]
     Active Substance: ETANERCEPT
     Dosage: 50 ?G, QD
  256. ENBREL [Suspect]
     Active Substance: ETANERCEPT
     Dosage: 50 ?G, QD
  257. ENBREL [Suspect]
     Active Substance: ETANERCEPT
     Dosage: 50 G, QD
  258. ENBREL [Suspect]
     Active Substance: ETANERCEPT
     Dosage: 50 MG, WE
  259. CELECOXIB [Suspect]
     Active Substance: CELECOXIB
     Indication: Product used for unknown indication
     Route: 065
  260. CELECOXIB [Suspect]
     Active Substance: CELECOXIB
     Route: 065
  261. HYDROXYCHLOROQUINE DIPHOSPHATE [Concomitant]
     Active Substance: HYDROXYCHLOROQUINE DIPHOSPHATE
     Indication: Product used for unknown indication
     Route: 065

REACTIONS (130)
  - Antinuclear antibody positive [Fatal]
  - Atelectasis [Fatal]
  - Cushingoid [Fatal]
  - Dry eye [Fatal]
  - Fibromyalgia [Fatal]
  - Flank pain [Fatal]
  - Impaired work ability [Fatal]
  - Interstitial lung disease [Fatal]
  - Joint effusion [Fatal]
  - Lung disorder [Fatal]
  - Nodule [Fatal]
  - Pleuritic pain [Fatal]
  - Rheumatoid nodule [Fatal]
  - Scleritis [Fatal]
  - Wheezing [Fatal]
  - Tenderness [Fatal]
  - Tenosynovitis stenosans [Fatal]
  - Photophobia [Fatal]
  - Bursitis [Fatal]
  - Crepitations [Fatal]
  - Eye pain [Fatal]
  - Feeling jittery [Fatal]
  - Musculoskeletal stiffness [Fatal]
  - Neoplasm malignant [Fatal]
  - Synovial cyst [Fatal]
  - Synovial fluid analysis [Fatal]
  - Thrombosis [Fatal]
  - Visual impairment [Fatal]
  - Red blood cell count decreased [Fatal]
  - Pain [Fatal]
  - Rheumatoid arthritis [Fatal]
  - Haemoglobin decreased [Fatal]
  - Joint swelling [Fatal]
  - Musculoskeletal pain [Fatal]
  - Eye irritation [Fatal]
  - Pain in extremity [Fatal]
  - Ocular hyperaemia [Fatal]
  - Dry mouth [Fatal]
  - Malaise [Fatal]
  - Nausea [Fatal]
  - Pneumonia [Fatal]
  - Infection [Fatal]
  - Rash [Fatal]
  - Pruritus [Fatal]
  - Dyspnoea [Fatal]
  - Arthralgia [Fatal]
  - Abdominal pain [Fatal]
  - Erythema [Fatal]
  - Peripheral swelling [Fatal]
  - Swelling face [Fatal]
  - Contraindicated product administered [Fatal]
  - Arthralgia [Fatal]
  - Arthritis [Fatal]
  - Back pain [Fatal]
  - Inflammation [Fatal]
  - Allergy to chemicals [Fatal]
  - Bone density decreased [Fatal]
  - C-reactive protein increased [Fatal]
  - Deformity [Fatal]
  - Diarrhoea [Fatal]
  - Dizziness [Fatal]
  - Drug intolerance [Fatal]
  - Fatigue [Fatal]
  - Feeling abnormal [Fatal]
  - Hand deformity [Fatal]
  - Joint range of motion decreased [Fatal]
  - Liver disorder [Fatal]
  - Muscular weakness [Fatal]
  - Myalgia [Fatal]
  - Pulmonary toxicity [Fatal]
  - Rash maculo-papular [Fatal]
  - Rash pruritic [Fatal]
  - Tenosynovitis [Fatal]
  - Upper respiratory tract infection [Fatal]
  - White blood cell count decreased [Fatal]
  - Conjunctivitis [Fatal]
  - Skin ulcer [Fatal]
  - Synovial disorder [Fatal]
  - Off label use [Fatal]
  - Therapeutic product effect decreased [Fatal]
  - Arthropathy [Fatal]
  - Drug hypersensitivity [Fatal]
  - Hepatotoxicity [Fatal]
  - Condition aggravated [Fatal]
  - Joint injury [Fatal]
  - Therapeutic product effect incomplete [Fatal]
  - Joint stiffness [Fatal]
  - Gastrointestinal toxicity [Fatal]
  - Quality of life decreased [Fatal]
  - Swelling [Fatal]
  - Therapy non-responder [Fatal]
  - Haemoglobin increased [Fatal]
  - Hepatic enzyme decreased [Fatal]
  - Red blood cell sedimentation rate decreased [Fatal]
  - Swelling face [Fatal]
  - Duodenal ulcer perforation [Fatal]
  - Facet joint syndrome [Fatal]
  - Folliculitis [Fatal]
  - General physical health deterioration [Fatal]
  - Glossodynia [Fatal]
  - Hypertension [Fatal]
  - Hypoaesthesia [Fatal]
  - Infusion related reaction [Fatal]
  - Medication error [Fatal]
  - Pyrexia [Fatal]
  - Road traffic accident [Fatal]
  - Sciatica [Fatal]
  - Sinusitis [Fatal]
  - Sleep disorder [Fatal]
  - Systemic lupus erythematosus [Fatal]
  - Type 2 diabetes mellitus [Fatal]
  - Treatment failure [Fatal]
  - Weight decreased [Fatal]
  - Helicobacter infection [Fatal]
  - Impaired healing [Fatal]
  - Peripheral swelling [Fatal]
  - Muscular weakness [Fatal]
  - Conjunctivitis [Fatal]
  - Rash maculo-papular [Fatal]
  - Bursitis [Fatal]
  - Interstitial lung disease [Fatal]
  - Therapeutic product effect decreased [Fatal]
  - Arthralgia [Fatal]
  - Crepitations [Fatal]
  - Skin ulcer [Fatal]
  - Pruritus [Fatal]
  - Ulcer [Fatal]
  - Erythema [Fatal]
  - Abdominal pain [Fatal]
  - Drug ineffective [Fatal]

NARRATIVE: CASE EVENT DATE: 20080615
